FAERS Safety Report 8986443 (Version 1)
Quarter: 2012Q4

REPORT INFORMATION
  Report Type: Spontaneous
  Country: US (occurrence: None)
  Receive Date: 20121217
  Receipt Date: 20121217
  Transmission Date: 20130627
  Serious: Yes (Death, Hospitalization)
  Sender: FDA-Public Use
  Company Number: USA/USA12/0026980

PATIENT
  Age: 36 Month
  Sex: Female

DRUGS (3)
  1. TACROLIMUS [Suspect]
     Indication: IMMUNOSUPPRESSION
  2. MYCOPHENOLATE MOFETIL (MYCOPHENOLATE MOFETIL) [Suspect]
     Indication: HEART TRANSPLANT
  3. METHYLPREDNISOLONE [Suspect]
     Indication: HEART TRANSPLANT

REACTIONS (13)
  - Heart transplant rejection [None]
  - Renal impairment [None]
  - Hypertension [None]
  - Acidosis hyperchloraemic [None]
  - Metabolic acidosis [None]
  - Polyomavirus-associated nephropathy [None]
  - Pneumonia [None]
  - Nephropathy toxic [None]
  - Peritoneal dialysis [None]
  - Respiratory failure [None]
  - Hyperkalaemia [None]
  - Encephalitis brain stem [None]
  - Glomerulosclerosis [None]
